FAERS Safety Report 15607511 (Version 1)
Quarter: 2018Q4

REPORT INFORMATION
  Report Type: Spontaneous
  Country: MW (occurrence: MW)
  Receive Date: 20181112
  Receipt Date: 20181112
  Transmission Date: 20190205
  Serious: Yes (Hospitalization)
  Sender: FDA-Public Use
  Company Number: MW-MYLANLABS-2018M1084000

PATIENT
  Age: 38 Year
  Sex: Male

DRUGS (3)
  1. FLUCONAZOLE. [Concomitant]
     Active Substance: FLUCONAZOLE
     Indication: MENINGITIS CRYPTOCOCCAL
     Route: 065
  2. EFAVIRENZ/LAMIVUDINE/TENOFOVIR [Suspect]
     Active Substance: EFAVIRENZ\LAMIVUDINE\TENOFOVIR DISOPROXIL FUMARATE
     Indication: HIV INFECTION
     Dosage: UNK
     Route: 065
  3. FLUCONAZOLE. [Concomitant]
     Active Substance: FLUCONAZOLE
     Route: 065

REACTIONS (5)
  - Immune reconstitution inflammatory syndrome [Recovering/Resolving]
  - Hemiparesis [Recovered/Resolved]
  - Ischaemic stroke [Recovering/Resolving]
  - Paradoxical drug reaction [Recovering/Resolving]
  - Central nervous system vasculitis [Recovering/Resolving]
